FAERS Safety Report 7450227-X (Version None)
Quarter: 2011Q2

REPORT INFORMATION
  Report Type: 
  Country: None (occurrence: None)
  Receive Date: 20110428
  Receipt Date: 20110428
  Transmission Date: 20111010
  Serious: Yes (Other)
  Sender: FDA-Public Use
  Company Number: None

PATIENT
  Age: 60 Year
  Weight: 58.0604 kg

DRUGS (1)
  1. MELLARIL [Suspect]
     Indication: INSOMNIA
     Dosage: 50 MG Q HS PO
     Route: 048
     Dates: start: 20110108, end: 20110420

REACTIONS (2)
  - DIABETES MELLITUS [None]
  - CONDITION AGGRAVATED [None]
